FAERS Safety Report 12943720 (Version 1)
Quarter: 2016Q4

REPORT INFORMATION
  Report Type: Spontaneous
  Country: US (occurrence: US)
  Receive Date: 20161115
  Receipt Date: 20161115
  Transmission Date: 20170207
  Serious: No
  Sender: FDA-Public Use
  Company Number: US-ROCHE-1769701

PATIENT
  Sex: Female

DRUGS (1)
  1. TAMIFLU [Suspect]
     Active Substance: OSELTAMIVIR PHOSPHATE
     Indication: PRODUCT USED FOR UNKNOWN INDICATION
     Dosage: FREQUENCY: THE PATIENT^S SPOUSE STATED THAT THE PATIENT ONLY TOOK 1 DOSE OUT OF 10 DOSES IN THE BOTT
     Route: 065

REACTIONS (1)
  - Vomiting [Unknown]
